FAERS Safety Report 6122422-3 (Version None)
Quarter: 2009Q1

REPORT INFORMATION
  Report Type: 
  Country: None (occurrence: None)
  Receive Date: 20090318
  Receipt Date: 20090204
  Transmission Date: 20090719
  Serious: No
  Sender: FDA-Public Use
  Company Number: US-ASTRAZENECA-2009UW03393

PATIENT
  Age: 69 Year
  Sex: Male

DRUGS (2)
  1. SYMBICORT [Suspect]
     Indication: ASTHMA
     Dosage: 160/4.5, UNKNOWN
     Route: 055
     Dates: start: 20080201, end: 20080801
  2. SYMBICORT [Suspect]
     Dosage: 80/4.5, UNKNOWN
     Route: 055
     Dates: start: 20080801

REACTIONS (3)
  - DYSPHONIA [None]
  - PULMONARY CONGESTION [None]
  - WHEEZING [None]
